FAERS Safety Report 11843310 (Version 1)
Quarter: 2015Q4

REPORT INFORMATION
  Report Type: Spontaneous
  Country: RO (occurrence: RO)
  Receive Date: 20151217
  Receipt Date: 20151217
  Transmission Date: 20160305
  Serious: Yes (Death, Life-Threatening, Hospitalization, Disabling, Other)
  Sender: FDA-Public Use
  Company Number: PHHY2015RO163397

PATIENT
  Age: 65 Year
  Sex: Female
  Weight: 50 kg

DRUGS (1)
  1. TASIGNA [Suspect]
     Active Substance: NILOTINIB
     Indication: CHRONIC MYELOID LEUKAEMIA
     Dosage: 400 MG, BID
     Route: 048
     Dates: start: 20150714, end: 20151103

REACTIONS (6)
  - Pancytopenia [Unknown]
  - Malignant neoplasm progression [Unknown]
  - Leukaemia recurrent [Unknown]
  - Chronic myeloid leukaemia [Unknown]
  - Death [Fatal]
  - Aplasia [Unknown]

NARRATIVE: CASE EVENT DATE: 20151120
